FAERS Safety Report 9658091 (Version 1)
Quarter: 2013Q4

REPORT INFORMATION
  Report Type: Spontaneous
  Country: CH (occurrence: CH)
  Receive Date: 20131030
  Receipt Date: 20131030
  Transmission Date: 20140711
  Serious: Yes (Congenital Anomaly)
  Sender: FDA-Public Use
  Company Number: PHHY2013CH122601

PATIENT
  Sex: 0

DRUGS (2)
  1. CITALOPRAM [Suspect]
     Dosage: MATERNAL DOSE: 60 MG DAILY
     Route: 064
  2. TRITTICO [Suspect]
     Dosage: MATERNAL DOSE: 200 MG DAILY
     Route: 064

REACTIONS (4)
  - Urinary tract malformation [Unknown]
  - Kidney malformation [Unknown]
  - Bladder agenesis [Unknown]
  - Foetal exposure during pregnancy [Unknown]
